FAERS Safety Report 21256389 (Version 2)
Quarter: 2022Q4

REPORT INFORMATION
  Report Type: Spontaneous
  Country: BR (occurrence: BR)
  Receive Date: 20220825
  Receipt Date: 20221013
  Transmission Date: 20230113
  Serious: Yes (Hospitalization, Other)
  Sender: FDA-Public Use
  Company Number: BR-CELLTRION INC.-2022BR013751

PATIENT

DRUGS (2)
  1. INFLIXIMAB [Suspect]
     Active Substance: INFLIXIMAB
     Indication: Colitis ulcerative
     Dosage: 3 AMPOULES EVERY 15 DAYS
     Route: 042
  2. ZANTAC [Concomitant]
     Active Substance: RANITIDINE HYDROCHLORIDE
     Indication: Colitis
     Dosage: 1 PILL PER DAY
     Route: 048
     Dates: start: 202206

REACTIONS (7)
  - Pain [Unknown]
  - Diarrhoea [Not Recovered/Not Resolved]
  - Anal inflammation [Not Recovered/Not Resolved]
  - Abdominal pain [Not Recovered/Not Resolved]
  - Treatment delayed [Unknown]
  - Off label use [Unknown]
  - Product communication issue [Unknown]

NARRATIVE: CASE EVENT DATE: 20211101
